FAERS Safety Report 4918401-1 (Version None)
Quarter: 2006Q1

REPORT INFORMATION
  Report Type: 
  Country: None (occurrence: None)
  Receive Date: 20060217
  Receipt Date: 20060217
  Transmission Date: 20060701
  Serious: Yes (Other)
  Sender: FDA-Public Use
  Company Number: None

PATIENT
  Sex: Female
  Weight: 105.1891 kg

DRUGS (7)
  1. MAGNEVIST [Suspect]
     Indication: NUCLEAR MAGNETIC RESONANCE IMAGING
     Dosage: 42 ML IV ONE TIME DOSE
     Route: 042
     Dates: start: 20051107
  2. ADDERALL 10 [Concomitant]
  3. WELLBUTRIN [Concomitant]
  4. A ONCE-MONTHLY BISPHOSPHONATE (NAME UNKNOWN) [Concomitant]
  5. ESTRING [Concomitant]
  6. SYNTHROID [Concomitant]
  7. AMBIEN [Concomitant]

REACTIONS (3)
  - POST PROCEDURAL COMPLICATION [None]
  - PRURITUS [None]
  - URTICARIA [None]
